FAERS Safety Report 24361919 (Version 2)
Quarter: 2025Q3

REPORT INFORMATION
  Report Type: Spontaneous
  Country: EU (occurrence: EU)
  Receive Date: 20240925
  Receipt Date: 20250708
  Transmission Date: 20251020
  Serious: Yes (Hospitalization, Other)
  Sender: RANBAXY
  Company Number: EU-SUN PHARMACEUTICAL INDUSTRIES LTD-2024R1-469482

PATIENT
  Age: 72 Year
  Sex: Male

DRUGS (2)
  1. SOTALOL [Suspect]
     Active Substance: SOTALOL
     Indication: Sinus rhythm
     Dosage: 40 MILLIGRAM, BID
     Route: 065
  2. SOTALOL [Suspect]
     Active Substance: SOTALOL
     Dosage: 80 MILLIGRAM, BID
     Route: 065

REACTIONS (2)
  - Sinus bradycardia [Unknown]
  - Sinus node dysfunction [Unknown]
